FAERS Safety Report 10059636 (Version 1)
Quarter: 2014Q2

REPORT INFORMATION
  Report Type: Spontaneous
  Country: US (occurrence: None)
  Receive Date: 20140402
  Receipt Date: 20140402
  Transmission Date: 20141212
  Serious: Yes (Death)
  Sender: FDA-Public Use
  Company Number: ADR-2014UNK001

PATIENT
  Age: 140 Day
  Sex: Female

DRUGS (4)
  1. NEVIRAPINE [Suspect]
     Indication: ACQUIRED IMMUNODEFICIENCY SYNDROME
     Route: 048
  2. NA [Suspect]
  3. TRUVADA [Concomitant]
  4. EPIZICOM [Concomitant]

REACTIONS (5)
  - Ascites [None]
  - Oligohydramnios [None]
  - Neural tube defect [None]
  - Maternal drugs affecting foetus [None]
  - Foetal death [None]
